FAERS Safety Report 5786563-2 (Version None)
Quarter: 2008Q2

REPORT INFORMATION
  Report Type: 
  Country: None (occurrence: None)
  Receive Date: 20080624
  Receipt Date: 20070808
  Transmission Date: 20081010
  Serious: No
  Sender: FDA-Public Use
  Company Number: US-ASTRAZENECA-2007UW19204

PATIENT
  Sex: Female

DRUGS (3)
  1. PULMICORT FLEXHALER [Suspect]
     Route: 055
  2. FLUTICASONE PROPIONATE [Concomitant]
  3. GUAIFENESIN/DEXTROMETHORPHAN [Concomitant]

REACTIONS (1)
  - PHARYNGOLARYNGEAL PAIN [None]
